FAERS Safety Report 10738064 (Version 1)
Quarter: 2015Q1

REPORT INFORMATION
  Report Type: Spontaneous
  Country: IT (occurrence: IT)
  Receive Date: 20150126
  Receipt Date: 20150126
  Transmission Date: 20150721
  Serious: Yes (Hospitalization)
  Sender: FDA-Public Use
  Company Number: IT-TEVA-536162ISR

PATIENT
  Age: 67 Year
  Sex: Female

DRUGS (3)
  1. CARBOPLATINO TEVA - 10 MG/ML - TEVA PHARMA B.V. [Suspect]
     Active Substance: CARBOPLATIN
     Indication: OVARIAN CANCER
     Dosage: 430 MG/M2 CYCLICAL
     Route: 042
     Dates: start: 20141223, end: 20150119
  2. AVASTIN [Suspect]
     Active Substance: BEVACIZUMAB
     Indication: OVARIAN CANCER
     Dosage: 1000 MG/KG CYCLICAL
     Route: 042
     Dates: start: 20141223, end: 20150119
  3. PACLITAXEL TEVA - 6 MG/ML CONCENTRATO PER SOLUZIONE PER INFUSIONE [Suspect]
     Active Substance: PACLITAXEL
     Indication: OVARIAN CANCER
     Dosage: 290 MG/M2 CYCLICAL
     Route: 042
     Dates: start: 20141223, end: 20150119

REACTIONS (3)
  - C-reactive protein increased [None]
  - Hyperpyrexia [Recovered/Resolved]
  - Myalgia [Recovered/Resolved]

NARRATIVE: CASE EVENT DATE: 20141227
